FAERS Safety Report 8461499-7 (Version None)
Quarter: 2012Q2

REPORT INFORMATION
  Report Type: 
  Country: None (occurrence: None)
  Receive Date: 20120625
  Receipt Date: 20120612
  Transmission Date: 20120825
  Serious: Yes (Death, Other)
  Sender: FDA-Public Use
  Company Number: US-CELGENEUS-163-21880-12032371

PATIENT
  Sex: Female

DRUGS (3)
  1. REVLIMID [Suspect]
     Indication: NON-HODGKIN'S LYMPHOMA
     Dosage: 5 MILLIGRAM
     Route: 048
     Dates: start: 20120203, end: 20120306
  2. VITAMIN K TAB [Concomitant]
     Dosage: 5 MILLIGRAM
     Route: 048
  3. REVLIMID [Suspect]

REACTIONS (2)
  - MYOCARDIAL INFARCTION [None]
  - NON-HODGKIN'S LYMPHOMA [None]
